FAERS Safety Report 9107745 (Version 3)
Quarter: 2013Q2

REPORT INFORMATION
  Report Type: Spontaneous
  Country: US (occurrence: US)
  Receive Date: 20130221
  Receipt Date: 20130517
  Transmission Date: 20140414
  Serious: Yes (Hospitalization)
  Sender: FDA-Public Use
  Company Number: US-BIOGENIDEC-2013BI015772

PATIENT
  Age: 56 Year
  Sex: Female

DRUGS (1)
  1. TYSABRI [Suspect]
     Indication: MULTIPLE SCLEROSIS
     Route: 042
     Dates: start: 20100505

REACTIONS (9)
  - Urinary tract infection bacterial [Not Recovered/Not Resolved]
  - Respiratory tract infection [Not Recovered/Not Resolved]
  - Deafness [Recovered/Resolved]
  - Blindness [Recovered/Resolved]
  - Abasia [Recovered/Resolved]
  - Myocarditis infectious [Not Recovered/Not Resolved]
  - Influenza [Unknown]
  - Speech disorder [Unknown]
  - Asthenia [Unknown]
